FAERS Safety Report 7772423-4 (Version None)
Quarter: 2011Q3

REPORT INFORMATION
  Report Type: 
  Country: None (occurrence: None)
  Receive Date: 20110922
  Receipt Date: 20110819
  Transmission Date: 20111222
  Serious: Yes (Other)
  Sender: FDA-Public Use
  Company Number: PHHY2011JP51607

PATIENT
  Age: 82 Year
  Sex: Female

DRUGS (5)
  1. AMLODIPINE [Concomitant]
     Dosage: 5 MG, UNK
     Route: 048
     Dates: start: 20110613
  2. GASMOTIN [Concomitant]
     Dosage: 15 MG, UNK
     Route: 048
     Dates: start: 20110613
  3. VANCOMYCIN HYCHLORIDE [Suspect]
     Indication: STAPHYLOCOCCAL INFECTION
     Dosage: 1 G, QD
     Route: 042
     Dates: start: 20110613, end: 20110613
  4. SAWADOL L [Concomitant]
     Dosage: 40 MG, UNK
     Route: 048
     Dates: start: 20110613
  5. OMEPRAZOLE [Concomitant]
     Dosage: 10 MG, UNK
     Route: 048
     Dates: start: 20110613

REACTIONS (3)
  - BLOOD PRESSURE INCREASED [None]
  - FLUSHING [None]
  - ABDOMINAL DISCOMFORT [None]
